FAERS Safety Report 9204788 (Version 1)
Quarter: 2013Q2

REPORT INFORMATION
  Report Type: Report from Study
  Country: JP (occurrence: JP)
  Receive Date: 20130402
  Receipt Date: 20130402
  Transmission Date: 20140414
  Serious: Yes (Other)
  Sender: FDA-Public Use
  Company Number: JP-GLAXOSMITHKLINE-B0598487A

PATIENT
  Age: 61 Year
  Sex: Female
  Weight: 66 kg

DRUGS (3)
  1. TYKERB [Suspect]
     Indication: BREAST CANCER
     Route: 048
     Dates: start: 20091008, end: 20091015
  2. TYKERB [Suspect]
     Indication: BREAST CANCER
     Route: 048
     Dates: start: 20091027, end: 20091101
  3. XELODA [Concomitant]
     Route: 048
     Dates: start: 20090713, end: 20091008

REACTIONS (2)
  - Urinary bladder haemorrhage [Recovering/Resolving]
  - Pneumonia [Not Recovered/Not Resolved]
